FAERS Safety Report 20033038 (Version 2)
Quarter: 2021Q4

REPORT INFORMATION
  Report Type: Spontaneous
  Country: JP (occurrence: JP)
  Receive Date: 20211104
  Receipt Date: 20211215
  Transmission Date: 20220303
  Serious: Yes (Other)
  Sender: FDA-Public Use
  Company Number: JP-NOVARTISPH-NVSJ2021JP017839

PATIENT
  Age: 63 Year
  Sex: Male

DRUGS (1)
  1. TRAVATAN Z [Suspect]
     Active Substance: TRAVOPROST
     Indication: Diabetic glaucoma
     Dosage: UNK
     Route: 047

REACTIONS (3)
  - Blindness [Unknown]
  - Diabetic glaucoma [Unknown]
  - Disease progression [Unknown]
